FAERS Safety Report 23257222 (Version 1)
Quarter: 2023Q4

REPORT INFORMATION
  Report Type: Other
  Country: JP (occurrence: JP)
  Receive Date: 20231204
  Receipt Date: 20231204
  Transmission Date: 20240109
  Serious: Yes (Other)
  Sender: FDA-Public Use
  Company Number: JP-CHUGAI-2023042810AA

PATIENT
  Age: 74 Year
  Sex: Female

DRUGS (3)
  1. AVASTIN [Suspect]
     Active Substance: BEVACIZUMAB
     Indication: Adenocarcinoma of appendix
     Dosage: UNK
     Route: 065
  2. XELODA [Suspect]
     Active Substance: CAPECITABINE
     Indication: Adenocarcinoma of appendix
     Route: 048
  3. OXALIPLATIN [Concomitant]
     Active Substance: OXALIPLATIN
     Indication: Adenocarcinoma of appendix
     Route: 065

REACTIONS (2)
  - Off label use [Unknown]
  - Hydronephrosis [Unknown]
